FAERS Safety Report 24028899 (Version 1)
Quarter: 2024Q2

REPORT INFORMATION
  Report Type: Spontaneous
  Country: US (occurrence: US)
  Receive Date: 20240628
  Receipt Date: 20240628
  Transmission Date: 20240716
  Serious: Yes (Death, Life-Threatening, Hospitalization, Other)
  Sender: FDA-Public Use
  Company Number: None

PATIENT
  Age: 61 Year
  Sex: Female

DRUGS (3)
  1. METFORMIN [Suspect]
     Active Substance: METFORMIN HYDROCHLORIDE
     Indication: Chronic kidney disease
  2. IBUPROFEN [Concomitant]
     Active Substance: IBUPROFEN
     Indication: Sciatica
  3. TYLENOL [Concomitant]
     Active Substance: ACETAMINOPHEN
     Indication: Sciatica

REACTIONS (2)
  - Lactic acidosis [Fatal]
  - Cardiogenic shock [Fatal]

NARRATIVE: CASE EVENT DATE: 20221001
